FAERS Safety Report 10303887 (Version 2)
Quarter: 2014Q3

REPORT INFORMATION
  Report Type: Spontaneous
  Country: US (occurrence: US)
  Receive Date: 20140714
  Receipt Date: 20140714
  Transmission Date: 20150326
  Serious: No
  Sender: FDA-Public Use
  Company Number: US-GILEAD-2013-0084837

PATIENT
  Sex: Female

DRUGS (3)
  1. LETAIRIS [Suspect]
     Active Substance: AMBRISENTAN
     Indication: PULMONARY HYPERTENSION
     Dosage: 10 MG, QD
     Dates: start: 20130123
  2. LETAIRIS [Suspect]
     Active Substance: AMBRISENTAN
     Indication: DECREASED APPETITE
  3. TYVASO [Concomitant]
     Active Substance: TREPROSTINIL

REACTIONS (3)
  - Dizziness [Unknown]
  - Cough [Recovering/Resolving]
  - Constipation [Unknown]
